FAERS Safety Report 25925049 (Version 1)
Quarter: 2025Q4

REPORT INFORMATION
  Report Type: Spontaneous
  Country: US (occurrence: None)
  Receive Date: 20251010
  Receipt Date: 20251010
  Transmission Date: 20260117
  Serious: Yes (Hospitalization)
  Sender: FDA-CTU
  Company Number: None

PATIENT
  Age: 52 Year
  Sex: Male
  Weight: 102.42 kg

DRUGS (2)
  1. HUMIRA [Suspect]
     Active Substance: ADALIMUMAB
  2. SIMLANDI [Suspect]
     Active Substance: ADALIMUMAB-RYVK

REACTIONS (2)
  - Nervous system disorder [None]
  - Drug level increased [None]

NARRATIVE: CASE EVENT DATE: 20250903
